FAERS Safety Report 15724061 (Version 1)
Quarter: 2018Q4

REPORT INFORMATION
  Report Type: Spontaneous
  Country: PR (occurrence: PR)
  Receive Date: 20181214
  Receipt Date: 20181214
  Transmission Date: 20190205
  Serious: Yes (Hospitalization)
  Sender: FDA-Public Use
  Company Number: PR-GUERBET-PR-20180007

PATIENT
  Age: 63 Year
  Sex: Male

DRUGS (2)
  1. DOTAREM [Suspect]
     Active Substance: GADOTERATE MEGLUMINE
     Indication: NUCLEAR MAGNETIC RESONANCE IMAGING ABDOMINAL
     Route: 065
     Dates: start: 20181120, end: 20181120
  2. DOTAREM [Suspect]
     Active Substance: GADOTERATE MEGLUMINE
     Route: 065
     Dates: start: 20181120, end: 20181120

REACTIONS (3)
  - Blister [Not Recovered/Not Resolved]
  - Inflammation [Recovered/Resolved]
  - Skin discolouration [Recovered/Resolved]

NARRATIVE: CASE EVENT DATE: 20181120
